FAERS Safety Report 19050915 (Version 1)
Quarter: 2021Q1

REPORT INFORMATION
  Report Type: Spontaneous
  Country: US (occurrence: US)
  Receive Date: 20210324
  Receipt Date: 20210324
  Transmission Date: 20210420
  Serious: No
  Sender: FDA-Public Use
  Company Number: US-TERSERA THERAPEUTICS LLC-2020TRS000701

PATIENT

DRUGS (2)
  1. ERGOMAR [Suspect]
     Active Substance: ERGOTAMINE TARTRATE
     Indication: MIGRAINE
     Dosage: 1 DOSAGE FORM, ONE IN THE EVENING
     Route: 048
     Dates: start: 20200316
  2. ERGOMAR [Suspect]
     Active Substance: ERGOTAMINE TARTRATE
     Dosage: 1 DOSAGE FORM, ONE IN THE MORNING AND ONE AROUND LUNCH
     Route: 048
     Dates: start: 20200317

REACTIONS (3)
  - Pain [Not Recovered/Not Resolved]
  - Chest pain [Not Recovered/Not Resolved]
  - Erythema [Not Recovered/Not Resolved]
